FAERS Safety Report 9226430 (Version 2)
Quarter: 2013Q3

REPORT INFORMATION
  Report Type: Spontaneous
  Country: FR (occurrence: FR)
  Receive Date: 20130411
  Receipt Date: 20130805
  Transmission Date: 20140515
  Serious: Yes (Life-Threatening, Hospitalization)
  Sender: FDA-Public Use
  Company Number: FR-UCBSA-082587

PATIENT
  Age: 52 Year
  Sex: Female

DRUGS (9)
  1. CIMZIA [Suspect]
     Dosage: 300MG AND THEN 200MG
     Dates: start: 201112, end: 201212
  2. HUMIRA [Suspect]
     Indication: ANKYLOSING SPONDYLITIS
     Dosage: 40 MG
     Dates: start: 2006
  3. ENBREL [Suspect]
  4. REMICADE [Suspect]
     Dosage: 100 MG
     Dates: end: 201112
  5. METHOTREXATE [Suspect]
     Dates: start: 1999
  6. METHOTREXATE [Suspect]
     Dates: end: 201301
  7. SPECIAFOLDINE [Concomitant]
  8. DOLIPRANE [Concomitant]
     Indication: PAIN
  9. VOLTARENE [Concomitant]
     Dosage: DAILY DOSE: 75 MG

REACTIONS (2)
  - Lung adenocarcinoma [Not Recovered/Not Resolved]
  - Inappropriate schedule of drug administration [Unknown]
